FAERS Safety Report 8596208-4 (Version None)
Quarter: 2012Q3

REPORT INFORMATION
  Report Type: 
  Country: None (occurrence: None)
  Receive Date: 20120815
  Receipt Date: 20120810
  Transmission Date: 20120928
  Serious: Yes (Other)
  Sender: FDA-Public Use
  Company Number: JP-GLAXOSMITHKLINE-B0813790A

PATIENT
  Sex: Female

DRUGS (6)
  1. LAMICTAL [Suspect]
     Indication: BIPOLAR DISORDER
     Dosage: 12.5MG ALTERNATE DAYS
     Route: 048
     Dates: start: 20120618, end: 20120702
  2. BIBITTOACE [Concomitant]
     Indication: INSOMNIA
     Dosage: 2MG PER DAY
     Route: 048
  3. ZYPREXA [Concomitant]
     Dosage: 5MG PER DAY
     Route: 048
  4. LITHIUM CARBONATE [Concomitant]
     Dosage: 800MG PER DAY
     Route: 048
  5. VALPROATE SODIUM [Concomitant]
     Dosage: 200MG PER DAY
     Route: 048
     Dates: start: 20111102, end: 20120702
  6. ALPRAZOLAM [Concomitant]
     Dosage: 1.2MG PER DAY
     Route: 048

REACTIONS (4)
  - WHITE BLOOD CELL COUNT DECREASED [None]
  - PLATELET COUNT DECREASED [None]
  - PYREXIA [None]
  - C-REACTIVE PROTEIN INCREASED [None]
